FAERS Safety Report 8563508-3 (Version None)
Quarter: 2012Q3

REPORT INFORMATION
  Report Type: 
  Country: None (occurrence: None)
  Receive Date: 20120802
  Receipt Date: 20120727
  Transmission Date: 20120928
  Serious: Yes (Other)
  Sender: FDA-Public Use
  Company Number: US-009507513-2012SP020758

PATIENT

DRUGS (1)
  1. DULERA [Suspect]
     Indication: ASTHMA
     Dosage: 200/5 MCG
     Route: 055
     Dates: start: 20120417

REACTIONS (7)
  - NAUSEA [None]
  - TREMOR [None]
  - HEADACHE [None]
  - NERVOUSNESS [None]
  - EYE PAIN [None]
  - BLINDNESS UNILATERAL [None]
  - MALAISE [None]
